FAERS Safety Report 10067610 (Version 1)
Quarter: 2014Q2

REPORT INFORMATION
  Report Type: Spontaneous
  Country: KR (occurrence: IL)
  Receive Date: 20140409
  Receipt Date: 20140409
  Transmission Date: 20141212
  Serious: Yes (Life-Threatening, Hospitalization)
  Sender: FDA-Public Use
  Company Number: KR-PERRIGO-14IL003528

PATIENT
  Age: 7 Year
  Sex: Female

DRUGS (5)
  1. ACETAMINOPHEN 650MG ER 544 [Suspect]
     Indication: PYREXIA
     Dosage: 10 MG/KG X 3 DOSES
     Route: 048
  2. ACETAMINOPHEN 650MG ER 544 [Suspect]
     Indication: OROPHARYNGEAL PAIN
     Dosage: 250 MG, SINGLE
     Route: 048
  3. ACETAMINOPHEN 650MG ER 544 [Suspect]
     Indication: ALLERGY TEST
  4. AMOXICILLIN [Concomitant]
     Indication: OROPHARYNGEAL PAIN
     Dosage: UNK, UNK
     Route: 048
  5. AMOXICILLIN [Concomitant]
     Indication: PYREXIA

REACTIONS (4)
  - Toxic epidermal necrolysis [Recovered/Resolved]
  - Urticaria [Recovered/Resolved]
  - Erythema [Recovered/Resolved]
  - Body temperature increased [Recovered/Resolved]
